FAERS Safety Report 16960987 (Version 1)
Quarter: 2019Q4

REPORT INFORMATION
  Report Type: Spontaneous
  Country: US (occurrence: US)
  Receive Date: 20191024
  Receipt Date: 20191024
  Transmission Date: 20200122
  Serious: Yes (Hospitalization)
  Sender: FDA-Public Use
  Company Number: None

PATIENT
  Age: 59 Year
  Sex: Female
  Weight: 67.13 kg

DRUGS (1)
  1. NATPARA (PARATHYROID HORMONE) [Suspect]
     Active Substance: PARATHYROID HORMONE
     Indication: HYPOPARATHYROIDISM
     Dosage: QUANTITIY = 1
     Dates: start: 20171005, end: 20191008

REACTIONS (3)
  - Blood calcium decreased [None]
  - Therapy change [None]
  - Blood calcium increased [None]

NARRATIVE: CASE EVENT DATE: 20191008
